FAERS Safety Report 25657153 (Version 2)
Quarter: 2025Q3

REPORT INFORMATION
  Report Type: Spontaneous
  Country: GB (occurrence: GB)
  Receive Date: 20250808
  Receipt Date: 20250904
  Transmission Date: 20251021
  Serious: Yes (Hospitalization)
  Sender: AMGEN
  Company Number: GB-AMGEN-GBRSP2025155227

PATIENT
  Sex: Male

DRUGS (2)
  1. ARANESP [Suspect]
     Active Substance: DARBEPOETIN ALFA
     Indication: Renal transplant
     Dosage: 20 MICROGRAM, Q4WK (60 MICROGRAM/0.3 ML)
     Route: 058
     Dates: start: 20211019
  2. ARANESP [Suspect]
     Active Substance: DARBEPOETIN ALFA
     Dosage: 30 MICROGRAM/0.3ML PFS, Q4WK
     Route: 058

REACTIONS (2)
  - Kidney infection [Not Recovered/Not Resolved]
  - Renal failure [Recovered/Resolved]
